FAERS Safety Report 7400301-9 (Version None)
Quarter: 2011Q2

REPORT INFORMATION
  Report Type: 
  Country: None (occurrence: None)
  Receive Date: 20110407
  Receipt Date: 20110402
  Transmission Date: 20111010
  Serious: Yes (Hospitalization, Other)
  Sender: FDA-Public Use
  Company Number: US-B.I. PHARMACEUTICALS,INC./RIDGEFIELD-2011-BP-09884BP

PATIENT
  Sex: Male

DRUGS (7)
  1. NEURONTIN [Concomitant]
     Indication: AGITATION
     Route: 048
  2. ENALAPRIL MALEATE [Concomitant]
     Route: 048
  3. PRADAXA [Suspect]
     Indication: ATRIAL FIBRILLATION
     Route: 048
     Dates: start: 20101101, end: 20110322
  4. PRADAXA [Suspect]
     Dosage: 150 MG
     Route: 048
     Dates: start: 20110328
  5. NORVASC [Concomitant]
     Route: 048
  6. SIMVASTATIN [Concomitant]
     Route: 048
  7. COREG [Concomitant]
     Route: 048

REACTIONS (15)
  - GAIT DISTURBANCE [None]
  - CARDIAC VALVE DISEASE [None]
  - POLLAKIURIA [None]
  - EYE OEDEMA [None]
  - HYPOTENSION [None]
  - FEELING COLD [None]
  - RENAL FAILURE [None]
  - HEPATOMEGALY [None]
  - COAGULATION TIME SHORTENED [None]
  - ABDOMINAL PAIN UPPER [None]
  - OEDEMA PERIPHERAL [None]
  - OEDEMA [None]
  - SEPSIS [None]
  - SYNCOPE [None]
  - DYSPNOEA [None]
